FAERS Safety Report 7371194-3 (Version None)
Quarter: 2011Q1

REPORT INFORMATION
  Report Type: 
  Country: None (occurrence: None)
  Receive Date: 20110314
  Receipt Date: 20110228
  Transmission Date: 20110831
  Serious: Yes (Hospitalization)
  Sender: FDA-Public Use
  Company Number: CTI_01308_2011

PATIENT
  Sex: Male

DRUGS (2)
  1. MEIACT (MEIACT MS (CEFDITOREN PIVOXIL)) (NOT SPECIFIED) [Suspect]
     Indication: PRODUCT USED FOR UNKNOWN INDICATION
     Dosage: (DF ORAL) ; (DF ORAL)
     Route: 048
     Dates: start: 20100423, end: 20110106
  2. MEIACT (MEIACT MS (CEFDITOREN PIVOXIL)) (NOT SPECIFIED) [Suspect]
     Indication: PRODUCT USED FOR UNKNOWN INDICATION
     Dosage: (DF ORAL) ; (DF ORAL)
     Route: 048
     Dates: start: 20080601

REACTIONS (7)
  - CONVULSION [None]
  - HYPOTONIA [None]
  - ALTERED STATE OF CONSCIOUSNESS [None]
  - HYPERAMMONAEMIA [None]
  - BLOOD CREATINE PHOSPHOKINASE INCREASED [None]
  - HYPOGLYCAEMIA [None]
  - CARNITINE DEFICIENCY [None]
